FAERS Safety Report 9775506 (Version 1)
Quarter: 2013Q4

REPORT INFORMATION
  Report Type: Spontaneous
  Country: IT (occurrence: IT)
  Receive Date: 20131220
  Receipt Date: 20131220
  Transmission Date: 20140711
  Serious: Yes (Hospitalization)
  Sender: FDA-Public Use
  Company Number: IT-PFIZER INC-2013363333

PATIENT
  Age: 76 Year
  Sex: Male

DRUGS (7)
  1. TAZOCIN [Suspect]
     Indication: SEPSIS
     Dosage: 13.5 MG, DAILY
     Route: 042
     Dates: start: 20130803, end: 20130815
  2. URBASON SOLUBILE [Suspect]
     Indication: SEPSIS
     Dosage: 40 MG, DAILY
     Route: 042
     Dates: start: 20130808, end: 20130817
  3. LUCEN [Concomitant]
  4. ARIXTRA [Concomitant]
  5. TRIATEC [Concomitant]
  6. SULAMID [Concomitant]
  7. LANTUS [Concomitant]

REACTIONS (1)
  - Fungal infection [Unknown]
